FAERS Safety Report 4782730-5 (Version None)
Quarter: 2005Q3

REPORT INFORMATION
  Report Type: 
  Country: None (occurrence: None)
  Receive Date: 20050929
  Receipt Date: 20050831
  Transmission Date: 20060218
  Serious: No
  Sender: FDA-Public Use
  Company Number: 416110

PATIENT
  Sex: Female

DRUGS (7)
  1. COREG [Suspect]
     Indication: HYPERTENSION
     Dosage: 6.25MG TWICE PER DAY
     Route: 048
  2. CARTIA XT [Concomitant]
  3. PLAVIX [Concomitant]
  4. NEXIUM [Concomitant]
  5. TYLENOL (CAPLET) [Concomitant]
  6. UNKNOWN DIURETIC [Concomitant]
  7. POTASSIUM [Concomitant]

REACTIONS (1)
  - FATIGUE [None]
